FAERS Safety Report 7436933-1 (Version None)
Quarter: 2011Q2

REPORT INFORMATION
  Report Type: 
  Country: None (occurrence: None)
  Receive Date: 20110426
  Receipt Date: 20110413
  Transmission Date: 20111010
  Serious: Yes (Death, Other)
  Sender: FDA-Public Use
  Company Number: DK-TYCO HEALTHCARE/MALLINCKRODT-T201100797

PATIENT
  Age: 10 Hour

DRUGS (1)
  1. FLUOXETINE [Suspect]

REACTIONS (5)
  - PULMONARY OEDEMA [None]
  - DRUG EXPOSURE DURING PREGNANCY [None]
  - CARDIOPULMONARY FAILURE [None]
  - PULMONARY HYPERTENSION [None]
  - HAEMORRHAGE [None]
